FAERS Safety Report 18114190 (Version 1)
Quarter: 2020Q3

REPORT INFORMATION
  Report Type: Spontaneous
  Country: US (occurrence: US)
  Receive Date: 20200805
  Receipt Date: 20200805
  Transmission Date: 20201103
  Serious: Yes (Death)
  Sender: FDA-Public Use
  Company Number: US-HIKMA PHARMACEUTICALS USA INC.-US-H14001-20-03652

PATIENT
  Age: 9 Year
  Sex: Female

DRUGS (10)
  1. EPINEPHRINE. [Concomitant]
     Active Substance: EPINEPHRINE
     Indication: RESUSCITATION
     Route: 065
  2. SEVOFLURANE. [Concomitant]
     Active Substance: SEVOFLURANE
     Indication: ANAESTHESIA
     Dosage: UNKNOWN
     Route: 065
  3. MORPHINE [Concomitant]
     Active Substance: MORPHINE
     Indication: ANAESTHESIA
     Dosage: UNKNOWN
     Route: 065
  4. PROPOFOL. [Concomitant]
     Active Substance: PROPOFOL
     Indication: ANAESTHESIA
     Dosage: UNKNOWN
     Route: 042
  5. FENTANYL. [Concomitant]
     Active Substance: FENTANYL
     Indication: ANAESTHESIA
     Dosage: UNKNOWN
     Route: 065
  6. AMIODARONE [Suspect]
     Active Substance: AMIODARONE
     Indication: RESUSCITATION
     Route: 042
  7. MAGNESIUM [Concomitant]
     Active Substance: MAGNESIUM
     Indication: RESUSCITATION
     Route: 042
  8. DEXAMETHASONE. [Concomitant]
     Active Substance: DEXAMETHASONE
     Indication: ANAESTHESIA
     Dosage: UNKNOWN
     Route: 065
  9. ONDANSETRON [Concomitant]
     Active Substance: ONDANSETRON
     Indication: ANAESTHESIA
     Dosage: UNKNOWN
     Route: 065
  10. NALOXONE [Concomitant]
     Active Substance: NALOXONE
     Indication: ANAESTHESIA
     Dosage: UNKNOWN
     Route: 065

REACTIONS (1)
  - Brugada syndrome [Fatal]
